FAERS Safety Report 23127852 (Version 10)
Quarter: 2024Q2

REPORT INFORMATION
  Report Type: Report from Study
  Country: ES (occurrence: ES)
  Receive Date: 20231031
  Receipt Date: 20240402
  Transmission Date: 20240716
  Serious: Yes (Death, Hospitalization)
  Sender: FDA-Public Use
  Company Number: ES-ABBVIE-5447324

PATIENT
  Age: 81 Year
  Sex: Male
  Weight: 70 kg

DRUGS (3)
  1. CARBIDOPA\LEVODOPA [Suspect]
     Active Substance: CARBIDOPA\LEVODOPA
     Indication: Parkinson^s disease
     Route: 050
     Dates: start: 20200206
  2. CARBIDOPA\LEVODOPA [Suspect]
     Active Substance: CARBIDOPA\LEVODOPA
  3. CARBIDOPA\LEVODOPA [Suspect]
     Active Substance: CARBIDOPA\LEVODOPA
     Indication: Parkinson^s disease
     Dosage: 240 MG/ML + 12 MG/ML SOLUCION PARA PERFUSION
     Route: 058
     Dates: start: 20240208, end: 20240209

REACTIONS (14)
  - Embedded device [Recovered/Resolved]
  - Post procedural discharge [Unknown]
  - Stoma site pain [Recovered/Resolved]
  - Stoma site haemorrhage [Recovering/Resolving]
  - Device issue [Recovered/Resolved]
  - Dyspnoea [Fatal]
  - Infection [Fatal]
  - Secretion discharge [Unknown]
  - Suffocation feeling [Unknown]
  - Embedded device [Unknown]
  - Septic shock [Fatal]
  - Abdominal distension [Unknown]
  - Pain [Unknown]
  - Pain [Unknown]

NARRATIVE: CASE EVENT DATE: 20231001
